FAERS Safety Report 4761784-6 (Version None)
Quarter: 2005Q3

REPORT INFORMATION
  Report Type: 
  Country: None (occurrence: None)
  Receive Date: 20050906
  Receipt Date: 20050823
  Transmission Date: 20060218
  Serious: Yes (Hospitalization)
  Sender: FDA-Public Use
  Company Number: GB-GLAXOSMITHKLINE-B0392162A

PATIENT
  Age: 25 Year
  Sex: Male
  Weight: 70 kg

DRUGS (4)
  1. PARACETAMOL [Suspect]
     Route: 065
  2. CLOZARIL [Suspect]
     Indication: SCHIZOPHRENIA
     Route: 048
     Dates: start: 20050618, end: 20050626
  3. VALPROIC ACID [Concomitant]
     Dosage: 500MG TWICE PER DAY
     Route: 065
  4. CLONAZEPAM [Concomitant]
     Dosage: .25MG PER DAY
     Route: 065

REACTIONS (2)
  - HYPOTENSION [None]
  - OVERDOSE [None]
